FAERS Safety Report 4452218-X (Version None)
Quarter: 2004Q3

REPORT INFORMATION
  Report Type: 
  Country: None (occurrence: None)
  Receive Date: 20040916
  Receipt Date: 20040916
  Transmission Date: 20050211
  Serious: Yes (Life-Threatening, Hospitalization)
  Sender: FDA-Public Use
  Company Number: None

PATIENT
  Age: 60 Year
  Sex: Female
  Weight: 88 kg

DRUGS (3)
  1. CLINDAMYCIN [Suspect]
     Indication: ORAL INFECTION
     Dosage: 900 MG  Q8 HOURS  ORAL
     Route: 048
     Dates: start: 20040904, end: 20040904
  2. CLINDAMYCIN [Suspect]
     Indication: PHARYNGITIS
     Dosage: 900 MG  Q8 HOURS  ORAL
     Route: 048
     Dates: start: 20040904, end: 20040904
  3. DILTIAZEM [Concomitant]

REACTIONS (1)
  - ANAPHYLACTIC REACTION [None]
